FAERS Safety Report 5387689-8 (Version None)
Quarter: 2007Q3

REPORT INFORMATION
  Report Type: 
  Country: None (occurrence: None)
  Receive Date: 20070716
  Receipt Date: 20070702
  Transmission Date: 20080115
  Serious: Yes (Disabling)
  Sender: FDA-Public Use
  Company Number: JP-ASTRAZENECA-2007AP04108

PATIENT
  Age: 16471 Day
  Sex: Female
  Weight: 40 kg

DRUGS (4)
  1. NAROPIN [Suspect]
     Indication: EPIDURAL ANAESTHESIA
     Route: 008
     Dates: start: 20070612, end: 20070614
  2. MARCAINE [Concomitant]
     Indication: SPINAL ANAESTHESIA
  3. CARBOCAIN [Concomitant]
     Indication: EPIDURAL ANAESTHESIA
     Route: 008
     Dates: start: 20070612, end: 20070612
  4. XYLOCAINE [Concomitant]

REACTIONS (1)
  - DIPLEGIA [None]
